FAERS Safety Report 8481786-6 (Version None)
Quarter: 2012Q3

REPORT INFORMATION
  Report Type: 
  Country: None (occurrence: None)
  Receive Date: 20120702
  Receipt Date: 20120620
  Transmission Date: 20120928
  Serious: Yes (Hospitalization, Other)
  Sender: FDA-Public Use
  Company Number: US-ROCHE-783119

PATIENT
  Sex: Male
  Weight: 85.5 kg

DRUGS (2)
  1. AVASTIN [Suspect]
     Indication: RENAL CANCER
     Dosage: OVER 30-90 MIN ON DAY 1 AND DAY 15
     Route: 042
  2. SORAFENIB [Suspect]
     Indication: RENAL CANCER
     Dosage: ON DAY 1-5, 8-12, 15-19, AND 22-26
     Route: 048

REACTIONS (7)
  - ABDOMINAL PAIN [None]
  - ANGIOPATHY [None]
  - VOMITING [None]
  - NAUSEA [None]
  - ENTERITIS [None]
  - ANAL ULCER [None]
  - DIARRHOEA [None]
